FAERS Safety Report 26197843 (Version 1)
Quarter: 2025Q4

REPORT INFORMATION
  Report Type: Spontaneous
  Country: JP (occurrence: JP)
  Receive Date: 20251224
  Receipt Date: 20251224
  Transmission Date: 20260118
  Serious: Yes (Hospitalization, Other)
  Sender: JOHNSON AND JOHNSON
  Company Number: JP-NShinyaku-EVA20251706001001307081

PATIENT
  Age: 90 Year
  Sex: Female

DRUGS (2)
  1. UPTRAVI [Suspect]
     Active Substance: SELEXIPAG
     Indication: Pulmonary hypertension
     Route: 048
     Dates: start: 20220725
  2. UPTRAVI [Suspect]
     Active Substance: SELEXIPAG
     Dosage: UNKNOWN, REDUCED
     Route: 048

REACTIONS (4)
  - Pneumonia [Recovering/Resolving]
  - Influenza [Unknown]
  - Hypokalaemia [Recovering/Resolving]
  - Vomiting [Recovering/Resolving]
